FAERS Safety Report 12093263 (Version 4)
Quarter: 2016Q1

REPORT INFORMATION
  Report Type: Report from Study
  Country: US (occurrence: US)
  Receive Date: 20160219
  Receipt Date: 20160323
  Transmission Date: 20160526
  Serious: Yes (Hospitalization, Other)
  Sender: FDA-Public Use
  Company Number: US-UCBSA-2016005652

PATIENT
  Age: 39 Year
  Sex: Male
  Weight: 95 kg

DRUGS (4)
  1. LEVETIRACETAM. [Suspect]
     Active Substance: LEVETIRACETAM
     Indication: SEIZURE
     Dosage: 500 MG, ONCE DAILY (QD); (KEEP UPPING THE DOSE)
     Route: 048
     Dates: start: 2015
  2. KLONOPIN [Concomitant]
     Active Substance: CLONAZEPAM
     Indication: EPILEPSY
     Dosage: DAILY
     Route: 048
  3. VIMPAT [Suspect]
     Active Substance: LACOSAMIDE
     Indication: SEIZURE
     Dosage: 50 MG, 2X/DAY (BID)
  4. LEVETIRACETAM. [Suspect]
     Active Substance: LEVETIRACETAM
     Dosage: 4 DF, 2X/DAY (BID) (500 MG 4 TABLETS BID)
     Dates: start: 2016, end: 2016

REACTIONS (8)
  - Rib fracture [Recovered/Resolved]
  - Seizure [Recovering/Resolving]
  - Ankle fracture [Recovering/Resolving]
  - Joint injury [Recovering/Resolving]
  - Overdose [Unknown]
  - Off label use [Unknown]
  - Road traffic accident [Not Recovered/Not Resolved]
  - Amnesia [Not Recovered/Not Resolved]

NARRATIVE: CASE EVENT DATE: 20151009
